FAERS Safety Report 6565744-4 (Version None)
Quarter: 2010Q1

REPORT INFORMATION
  Report Type: 
  Country: None (occurrence: None)
  Receive Date: 20100201
  Receipt Date: 20090507
  Transmission Date: 20100710
  Serious: No
  Sender: FDA-Public Use
  Company Number: US-ABBOTT-09P-163-0564747-00

PATIENT
  Age: 78 Year
  Sex: Male

DRUGS (1)
  1. LUPRON DEPOT [Suspect]
     Indication: DRUG USE FOR UNKNOWN INDICATION

REACTIONS (7)
  - ARTHRALGIA [None]
  - BREAST ENLARGEMENT [None]
  - CONSTIPATION [None]
  - HYPOAESTHESIA [None]
  - PAIN [None]
  - SENSATION OF HEAVINESS [None]
  - SEXUAL DYSFUNCTION [None]
